FAERS Safety Report 9455234 (Version 2)
Quarter: 2016Q4

REPORT INFORMATION
  Report Type: Spontaneous
  Country: US (occurrence: US)
  Receive Date: 20130813
  Receipt Date: 20161110
  Transmission Date: 20170207
  Serious: Yes (Other)
  Sender: FDA-Public Use
  Company Number: US-SANOFI-AVENTIS-2013SA080048

PATIENT
  Age: 69 Year
  Sex: Male
  Weight: 111.13 kg

DRUGS (3)
  1. LANTUS SOLOSTAR [Suspect]
     Active Substance: INSULIN GLARGINE
     Indication: TYPE 2 DIABETES MELLITUS
     Dosage: TAKEN FROM: 4 YEARS. DOSE:45 UNIT(S)
     Route: 051
     Dates: start: 2006
  2. LANTUS SOLOSTAR [Suspect]
     Active Substance: INSULIN GLARGINE
     Indication: TYPE 2 DIABETES MELLITUS
     Dosage: TAKEN FROM: 4 YEARS. DOSE:45 UNIT(S)
     Route: 051
     Dates: start: 2006
  3. SOLOSTAR [Concomitant]
     Active Substance: DEVICE

REACTIONS (5)
  - Eye disorder [Not Recovered/Not Resolved]
  - Visual acuity reduced [Not Recovered/Not Resolved]
  - Gait disturbance [Not Recovered/Not Resolved]
  - Cataract [Unknown]
  - Neuropathy peripheral [Not Recovered/Not Resolved]
